FAERS Safety Report 4359094-4 (Version None)
Quarter: 2004Q2

REPORT INFORMATION
  Report Type: 
  Country: None (occurrence: None)
  Receive Date: 20040517
  Receipt Date: 20040517
  Transmission Date: 20050107
  Serious: Yes (Hospitalization)
  Sender: FDA-Public Use
  Company Number: None

PATIENT
  Age: 88 Year
  Sex: Male

DRUGS (12)
  1. SPIRONOLACTONE [Suspect]
     Indication: HYPERTENSION
  2. LISINOPRIL [Suspect]
     Indication: HYPERTENSION
     Dates: start: 19950601
  3. NPH INSULIN [Concomitant]
  4. TAMSULOSIN [Concomitant]
  5. FUROSEMIDE [Concomitant]
  6. AVANDIA [Concomitant]
  7. ASPIRIN [Concomitant]
  8. ZOCOR [Concomitant]
  9. EPOGEN [Concomitant]
  10. LEVOTHYROXINE [Concomitant]
  11. NITROGLYCERIN [Concomitant]
  12. RABEPRAZOLE SODIUM [Concomitant]

REACTIONS (1)
  - HYPERKALAEMIA [None]
